FAERS Safety Report 10693803 (Version 6)
Quarter: 2017Q1

REPORT INFORMATION
  Report Type: Spontaneous
  Country: US (occurrence: US)
  Receive Date: 20150106
  Receipt Date: 20170124
  Transmission Date: 20170428
  Serious: Yes (Hospitalization, Other)
  Sender: FDA-Public Use
  Company Number: US-BAYER-2015-001376

PATIENT
  Age: 19 Year
  Sex: Female
  Weight: 56.69 kg

DRUGS (12)
  1. NEXIUM [Concomitant]
     Active Substance: ESOMEPRAZOLE MAGNESIUM
  2. ALBUTEROL. [Concomitant]
     Active Substance: ALBUTEROL
  3. PREDNISONE. [Concomitant]
     Active Substance: PREDNISONE
  4. ZOFRAN [Concomitant]
     Active Substance: ONDANSETRON HYDROCHLORIDE
  5. IBUPROFEN. [Concomitant]
     Active Substance: IBUPROFEN
  6. MIRENA [Suspect]
     Active Substance: LEVONORGESTREL
     Indication: CONTRACEPTION
     Dosage: 20 MCG/24HR, CONT
     Route: 015
     Dates: start: 20090119, end: 201108
  7. DOXYCYCLINE. [Concomitant]
     Active Substance: DOXYCYCLINE
  8. ZITHROMAX [Concomitant]
     Active Substance: AZITHROMYCIN DIHYDRATE
  9. IRON [Concomitant]
     Active Substance: IRON
  10. MIRENA [Suspect]
     Active Substance: LEVONORGESTREL
     Indication: CONTRACEPTION
     Dosage: 20 MCG/24HR, CONT
     Route: 015
     Dates: start: 20120927, end: 201312
  11. NUVARING [Concomitant]
     Active Substance: ETHINYL ESTRADIOL\ETONOGESTREL
     Indication: CONTRACEPTION
     Dosage: UNK
     Dates: start: 20080612
  12. SUPRAX [Concomitant]
     Active Substance: CEFIXIME

REACTIONS (13)
  - Embedded device [None]
  - Abdominal pain upper [None]
  - Emotional distress [None]
  - Ectopic pregnancy with contraceptive device [None]
  - Pelvic inflammatory disease [None]
  - Vaginal infection [None]
  - Device issue [None]
  - Drug ineffective [None]
  - Amenorrhoea [None]
  - Device expulsion [None]
  - Injury [None]
  - Depression [None]
  - Anxiety [None]

NARRATIVE: CASE EVENT DATE: 200902
